FAERS Safety Report 10549298 (Version 2)
Quarter: 2014Q4

REPORT INFORMATION
  Report Type: Spontaneous
  Country: US (occurrence: US)
  Receive Date: 20141028
  Receipt Date: 20141119
  Transmission Date: 20150529
  Serious: Yes (Death, Life-Threatening, Hospitalization, Other)
  Sender: FDA-Public Use
  Company Number: US-JNJFOC-20141014868

PATIENT
  Age: 44 Year
  Sex: Female
  Weight: 108.41 kg

DRUGS (4)
  1. CARMOL [Concomitant]
     Indication: PSORIASIS
     Dosage: AAA BID
     Route: 065
     Dates: start: 20140603
  2. STELARA [Suspect]
     Active Substance: USTEKINUMAB
     Indication: PSORIASIS
     Route: 058
     Dates: start: 20121219, end: 20140711
  3. HALOBETASOL PROPIONATE. [Concomitant]
     Active Substance: HALOBETASOL PROPIONATE
     Indication: PSORIASIS
     Dosage: AAA BID
     Route: 065
     Dates: start: 20140603
  4. SALICYLIC ACID. [Concomitant]
     Active Substance: SALICYLIC ACID
     Indication: PSORIASIS
     Dosage: AAA BID
     Route: 065
     Dates: start: 20140603

REACTIONS (3)
  - Cardio-respiratory arrest [Fatal]
  - Pulmonary embolism [Recovered/Resolved]
  - Endodontic procedure [Unknown]

NARRATIVE: CASE EVENT DATE: 20130215
